FAERS Safety Report 7683439-0 (Version None)
Quarter: 2011Q3

REPORT INFORMATION
  Report Type: 
  Country: None (occurrence: None)
  Receive Date: 20110815
  Receipt Date: 20110809
  Transmission Date: 20111222
  Serious: Yes (Life-Threatening, Hospitalization, Other)
  Sender: FDA-Public Use
  Company Number: PHHY2011GB71296

PATIENT
  Age: 72 Year
  Sex: Male
  Weight: 74 kg

DRUGS (8)
  1. BACLOFEN [Concomitant]
     Dosage: 10 MG, TID
  2. FLUDROCORTISONE ACETATE [Concomitant]
     Dosage: 100 UG, QD
  3. ALBUTEROL [Concomitant]
     Dosage: 2 DF, PRN
  4. SIMVASTATIN [Concomitant]
     Dosage: 40 MG, QD
  5. FOLIC ACID [Concomitant]
     Dosage: 5 MG, QD
  6. NITROGLYCERIN [Concomitant]
     Dosage: UNK UKN, UNK
     Route: 060
  7. SERTRALINE HYDROCHLORIDE [Suspect]
     Indication: DEPRESSION
     Dosage: 150 MG, QD
     Route: 048
     Dates: start: 20110401, end: 20110702
  8. ASPIRIN [Concomitant]
     Dosage: 75 MG, QD

REACTIONS (6)
  - CIRCULATORY COLLAPSE [None]
  - PALLOR [None]
  - SYNCOPE [None]
  - ELECTROCARDIOGRAM QT PROLONGED [None]
  - VENTRICULAR TACHYCARDIA [None]
  - LOSS OF CONSCIOUSNESS [None]
